FAERS Safety Report 8536481-1 (Version None)
Quarter: 2012Q3

REPORT INFORMATION
  Report Type: 
  Country: None (occurrence: None)
  Receive Date: 20120725
  Receipt Date: 20120720
  Transmission Date: 20120928
  Serious: Yes (Other)
  Sender: FDA-Public Use
  Company Number: PHEH2012US013135

PATIENT
  Sex: Female

DRUGS (6)
  1. VITAMIN D [Concomitant]
     Dosage: 1000 IU, QD
     Route: 048
  2. BENICAR [Concomitant]
     Indication: HYPERTENSION
     Dosage: 5 MG, QD
     Route: 048
  3. FOLIC ACID [Concomitant]
     Dosage: 1 MG, QD
  4. RECLAST [Suspect]
     Indication: OSTEOPOROSIS
     Dosage: UNK UKN, YEARLY
     Route: 042
     Dates: start: 20120601
  5. THYROID TAB [Concomitant]
     Indication: THYROID DISORDER
     Dosage: 25 MG, QD
     Route: 048
  6. RECLAST [Suspect]
     Dosage: UNK UKN, YEARLY
     Route: 042
     Dates: start: 20120516

REACTIONS (6)
  - ARTHRITIS [None]
  - MASTICATION DISORDER [None]
  - PAIN IN JAW [None]
  - RASH [None]
  - MUSCULOSKELETAL PAIN [None]
  - PAIN IN EXTREMITY [None]
